FAERS Safety Report 8407911-0 (Version None)
Quarter: 2012Q2

REPORT INFORMATION
  Report Type: 
  Country: None (occurrence: None)
  Receive Date: 20120604
  Receipt Date: 20120531
  Transmission Date: 20120825
  Serious: Yes (Other)
  Sender: FDA-Public Use
  Company Number: DE-ROCHE-1064826

PATIENT
  Age: 74 Year
  Sex: Female

DRUGS (4)
  1. AZARGA [Concomitant]
  2. LUCENTIS [Suspect]
     Indication: RETINAL VEIN OCCLUSION
     Route: 050
     Dates: start: 20120419
  3. LUCENTIS [Suspect]
     Route: 050
     Dates: start: 20120521
  4. INSULIN [Concomitant]

REACTIONS (7)
  - ERYTHEMA [None]
  - EYELID OEDEMA [None]
  - BLOOD GLUCOSE INCREASED [None]
  - EXOPHTHALMOS [None]
  - OEDEMA PERIPHERAL [None]
  - SWELLING FACE [None]
  - ARTHROPOD BITE [None]
